FAERS Safety Report 5054279-6 (Version None)
Quarter: 2006Q3

REPORT INFORMATION
  Report Type: 
  Country: None (occurrence: None)
  Receive Date: 20060713
  Receipt Date: 20060710
  Transmission Date: 20061208
  Serious: Yes (Other)
  Sender: FDA-Public Use
  Company Number: 007952

PATIENT
  Sex: Female

DRUGS (7)
  1. MEDROXYPROGESTERONE ACETATE [Suspect]
     Dosage: ORAL
     Route: 048
  2. ESTROPIPATE [Suspect]
     Dosage: ORAL
     Route: 048
  3. CYCRIN [Suspect]
     Dosage: ORAL
     Route: 048
  4. OGEN [Suspect]
     Dosage: ORAL
     Route: 048
  5. PREMARIN [Suspect]
     Dosage: ORAL
     Route: 048
  6. PREMPRO [Suspect]
     Dosage: ORAL
  7. PROVERA [Suspect]
     Dosage: ORAL
     Route: 048

REACTIONS (1)
  - BREAST CANCER [None]
